FAERS Safety Report 16851962 (Version 2)
Quarter: 2020Q3

REPORT INFORMATION
  Report Type: Spontaneous
  Country: US (occurrence: US)
  Receive Date: 20190925
  Receipt Date: 20200828
  Transmission Date: 20201102
  Serious: Yes (Other)
  Sender: FDA-Public Use
  Company Number: US-GILEAD-2019-0429428

PATIENT
  Age: 45 Year
  Sex: Female

DRUGS (18)
  1. JULUCA [Concomitant]
     Active Substance: DOLUTEGRAVIR SODIUM\RILPIVIRINE HYDROCHLORIDE
  2. NORVIR [Concomitant]
     Active Substance: RITONAVIR
  3. TIVICAY [Concomitant]
     Active Substance: DOLUTEGRAVIR SODIUM
  4. OMEPRAZOLE. [Concomitant]
     Active Substance: OMEPRAZOLE
     Indication: GASTROOESOPHAGEAL REFLUX DISEASE
  5. PROMETHAZINE [Concomitant]
     Active Substance: PROMETHAZINE HYDROCHLORIDE
     Indication: NAUSEA
  6. LOSARTAN. [Concomitant]
     Active Substance: LOSARTAN
  7. PRAVASTATIN. [Concomitant]
     Active Substance: PRAVASTATIN
  8. GENVOYA [Concomitant]
     Active Substance: COBICISTAT\ELVITEGRAVIR\EMTRICITABINE\TENOFOVIR ALAFENAMIDE FUMARATE
  9. TRIZIVIR [Concomitant]
     Active Substance: ABACAVIR SULFATE\LAMIVUDINE\ZIDOVUDINE
  10. ESTROGEN [Concomitant]
     Active Substance: ESTROGENS
     Indication: OESTROGEN REPLACEMENT THERAPY
  11. CYMBALTA [Concomitant]
     Active Substance: DULOXETINE HYDROCHLORIDE
  12. VIREAD [Suspect]
     Active Substance: TENOFOVIR DISOPROXIL FUMARATE
     Indication: HIV INFECTION
     Dosage: UNK
     Route: 048
     Dates: start: 2003, end: 2015
  13. VITAMIN E AL [Concomitant]
     Active Substance: TOCOPHEROL
  14. VALACYCLOVIR [Concomitant]
     Active Substance: VALACYCLOVIR HYDROCHLORIDE
  15. COMBIVIR [Concomitant]
     Active Substance: LAMIVUDINE\ZIDOVUDINE
  16. REYATAZ [Concomitant]
     Active Substance: ATAZANAVIR SULFATE
  17. SUSTIVA [Concomitant]
     Active Substance: EFAVIRENZ
  18. BIOTIN [Concomitant]
     Active Substance: BIOTIN

REACTIONS (26)
  - Clavicle fracture [Not Recovered/Not Resolved]
  - Foot fracture [Not Recovered/Not Resolved]
  - Economic problem [Unknown]
  - Quality of life decreased [Not Recovered/Not Resolved]
  - Loss of employment [Unknown]
  - Emotional distress [Recovered/Resolved]
  - Osteopenia [Not Recovered/Not Resolved]
  - Upper limb fracture [Not Recovered/Not Resolved]
  - Loss of personal independence in daily activities [Not Recovered/Not Resolved]
  - Disturbance in attention [Unknown]
  - Decreased activity [Not Recovered/Not Resolved]
  - Social problem [Not Recovered/Not Resolved]
  - Rib fracture [Not Recovered/Not Resolved]
  - Pain [Recovered/Resolved]
  - Mobility decreased [Not Recovered/Not Resolved]
  - Forearm fracture [Unknown]
  - Renal failure [Unknown]
  - Fatigue [Unknown]
  - Chronic kidney disease [Not Recovered/Not Resolved]
  - Femoral neck fracture [Unknown]
  - Fine motor skill dysfunction [Not Recovered/Not Resolved]
  - Anxiety [Recovered/Resolved]
  - Anhedonia [Not Recovered/Not Resolved]
  - Personal relationship issue [Unknown]
  - Osteoporosis [Not Recovered/Not Resolved]
  - Hip fracture [Not Recovered/Not Resolved]

NARRATIVE: CASE EVENT DATE: 2010
